FAERS Safety Report 7673489-2 (Version None)
Quarter: 2011Q3

REPORT INFORMATION
  Report Type: 
  Country: None (occurrence: None)
  Receive Date: 20110810
  Receipt Date: 20110801
  Transmission Date: 20111222
  Serious: Yes (Hospitalization)
  Sender: FDA-Public Use
  Company Number: JP-JNJFOC-20110712287

PATIENT
  Sex: Female
  Weight: 73 kg

DRUGS (19)
  1. PALIPERIDONE [Suspect]
     Route: 030
     Dates: start: 20110411, end: 20110704
  2. PREDNISOLONE [Concomitant]
     Indication: MUSCULOSKELETAL PAIN
  3. CRESTOR [Concomitant]
     Indication: HYPERTENSION
  4. CELECOXIB [Concomitant]
     Indication: MUSCULOSKELETAL PAIN
  5. RIMATIL [Concomitant]
     Indication: MUSCULOSKELETAL PAIN
  6. CLONAZEPAM [Concomitant]
     Indication: SCHIZOPHRENIA
  7. TASMOLIN [Concomitant]
  8. GOODMIN [Concomitant]
     Indication: SCHIZOPHRENIA
  9. PALIPERIDONE [Suspect]
     Route: 030
     Dates: start: 20110314, end: 20110314
  10. RHEUMATREX [Concomitant]
     Indication: MUSCULOSKELETAL PAIN
  11. BUP-4 [Concomitant]
     Indication: HYPERTONIC BLADDER
  12. NIFEDIPINE [Concomitant]
     Indication: HYPERTENSION
  13. PALIPERIDONE [Suspect]
     Indication: SCHIZOPHRENIA
     Route: 030
     Dates: start: 20110307, end: 20110307
  14. LAMISIL [Concomitant]
     Indication: HYPERTONIC BLADDER
  15. FOLIC ACID [Concomitant]
     Indication: MUSCULOSKELETAL PAIN
  16. STANZOME [Concomitant]
     Indication: MUSCULOSKELETAL PAIN
  17. GLYCERINE [Concomitant]
     Indication: CONSTIPATION
  18. INTENURSE [Concomitant]
     Route: 062
     Dates: start: 20110324
  19. PROMETHAZINE HYDROCHLORIDE [Concomitant]
     Indication: SCHIZOPHRENIA

REACTIONS (2)
  - SCHIZOPHRENIA [None]
  - FEMUR FRACTURE [None]
